FAERS Safety Report 4479792-1 (Version None)
Quarter: 2004Q4

REPORT INFORMATION
  Report Type: 
  Country: None (occurrence: None)
  Receive Date: 20041015
  Receipt Date: 20041006
  Transmission Date: 20050328
  Serious: Yes (Hospitalization)
  Sender: FDA-Public Use
  Company Number: STA-AE-04-MTX-470

PATIENT
  Age: 61 Year
  Sex: Female

DRUGS (12)
  1. METHOTREXATE [Suspect]
     Dosage: 20 MG 1X PER 1 WK,
  2. METHOTREXATE [Suspect]
     Dosage: 10 MG 1X PER 1 WK,
     Dates: start: 20040804
  3. HUMIRA [Suspect]
     Dosage: 40 MG 1X PER 2 WK, SC
     Route: 058
     Dates: end: 20040519
  4. METHYLPREDNISOLONE [Concomitant]
  5. PREDNISOLONE [Concomitant]
  6. DOSS (DANTRON/DOCUSATE SODIUM) [Concomitant]
  7. VALORON N (NALOXONE HYDROCHLOLORIDE/TILIDINE HYDROCHOLORIDE) [Concomitant]
  8. VALORON (TILIDINE HYDROCHLORIDE) [Concomitant]
  9. DOXEPIN (DOXEPIN) [Concomitant]
  10. ANTRA (OMEPRAZOLE) [Concomitant]
  11. ATENOLOL [Concomitant]
  12. ALPRAZOLAM [Concomitant]

REACTIONS (3)
  - ENTEROCOCCAL INFECTION [None]
  - ESCHERICHIA INFECTION [None]
  - UROSEPSIS [None]
